FAERS Safety Report 9992730 (Version 1)
Quarter: 2014Q1

REPORT INFORMATION
  Report Type: Spontaneous
  Country: NO (occurrence: NO)
  Receive Date: 20140310
  Receipt Date: 20140310
  Transmission Date: 20141002
  Serious: Yes (Other)
  Sender: FDA-Public Use
  Company Number: NO-PFIZER INC-2014066106

PATIENT
  Age: 34 Year
  Sex: Female
  Weight: 59 kg

DRUGS (2)
  1. NEURONTIN [Suspect]
     Indication: BACK PAIN
     Dosage: 300 MG, X 8 DAY
     Dates: start: 20120101, end: 20140210
  2. CODAXOL [Concomitant]
     Indication: BACK PAIN
     Dates: start: 20110701

REACTIONS (7)
  - Depression [Recovered/Resolved]
  - Pain [Recovering/Resolving]
  - Pain in extremity [Recovering/Resolving]
  - Weight decreased [Unknown]
  - Eating disorder [Unknown]
  - Chills [Unknown]
  - Hyperhidrosis [Unknown]
